FAERS Safety Report 14340778 (Version 2)
Quarter: 2018Q1

REPORT INFORMATION
  Report Type: Report from Study
  Country: BR (occurrence: BR)
  Receive Date: 20180101
  Receipt Date: 20180115
  Transmission Date: 20180509
  Serious: Yes (Other)
  Sender: FDA-Public Use
  Company Number: PHHY2017BR196786

PATIENT
  Sex: Male

DRUGS (1)
  1. EXELON PATCH [Suspect]
     Active Substance: RIVASTIGMINE
     Indication: LOSS OF CONSCIOUSNESS
     Dosage: UNK
     Route: 062

REACTIONS (7)
  - Dysstasia [Unknown]
  - General physical health deterioration [Unknown]
  - Product use in unapproved indication [Unknown]
  - Aphasia [Unknown]
  - Asthenia [Unknown]
  - Weight decreased [Unknown]
  - Muscle atrophy [Unknown]
